FAERS Safety Report 7312108-1 (Version None)
Quarter: 2011Q1

REPORT INFORMATION
  Report Type: 
  Country: None (occurrence: None)
  Receive Date: 20110224
  Receipt Date: 20110222
  Transmission Date: 20110831
  Serious: Yes (Other)
  Sender: FDA-Public Use
  Company Number: GXKR2011DE01005

PATIENT
  Sex: Female

DRUGS (1)
  1. LAMOTRIGIN 1A PHARMA [Suspect]
     Route: 048

REACTIONS (1)
  - DIABETES INSIPIDUS [None]
